FAERS Safety Report 23256319 (Version 1)
Quarter: 2023Q4

REPORT INFORMATION
  Report Type: Spontaneous
  Country: CH (occurrence: None)
  Receive Date: 20231204
  Receipt Date: 20231204
  Transmission Date: 20240110
  Serious: No
  Sender: FDA-Public Use
  Company Number: CH-ROCHE-3462408

PATIENT
  Age: 28 Year

DRUGS (1)
  1. OCREVUS [Suspect]
     Active Substance: OCRELIZUMAB
     Indication: Primary progressive multiple sclerosis
     Route: 065

REACTIONS (11)
  - Therapeutic response shortened [Unknown]
  - Feeling abnormal [Unknown]
  - Malaise [Unknown]
  - Gastrointestinal disorder [Unknown]
  - Fatigue [Unknown]
  - Infection susceptibility increased [Unknown]
  - Infusion related reaction [Unknown]
  - Hypersensitivity [Unknown]
  - Weight increased [Unknown]
  - Laryngitis [Unknown]
  - COVID-19 [Unknown]
